FAERS Safety Report 4860869-3 (Version None)
Quarter: 2005Q4

REPORT INFORMATION
  Report Type: 
  Country: None (occurrence: None)
  Receive Date: 20051220
  Receipt Date: 20051209
  Transmission Date: 20060501
  Serious: Yes (Other)
  Sender: FDA-Public Use
  Company Number: CA-BRISTOL-MYERS SQUIBB COMPANY-13218870

PATIENT
  Age: 76 Year
  Sex: Male

DRUGS (16)
  1. TEQUIN [Suspect]
     Route: 042
  2. AGGRENOX [Concomitant]
     Route: 048
  3. ALTACE [Concomitant]
     Route: 048
  4. COMBIVENT [Concomitant]
     Route: 055
  5. DIABETA [Concomitant]
  6. FLOVENT [Concomitant]
     Route: 055
  7. GLUCOPHAGE [Concomitant]
  8. GLUCOPHAGE [Concomitant]
     Route: 048
  9. IMDUR [Concomitant]
     Route: 048
  10. LASIX [Concomitant]
     Route: 048
  11. PRANDASE [Concomitant]
     Route: 048
  12. SLOW-K [Concomitant]
     Route: 048
  13. SOTALOL HCL [Concomitant]
     Route: 048
  14. VITAMIN B-12 [Concomitant]
  15. ZOCOR [Concomitant]
     Route: 048
  16. ZOLOFT [Concomitant]
     Route: 048

REACTIONS (1)
  - HYPOGLYCAEMIA [None]
